FAERS Safety Report 9136151 (Version 2)
Quarter: 2015Q2

REPORT INFORMATION
  Report Type: Spontaneous
  Country: US (occurrence: US)
  Receive Date: 20130304
  Receipt Date: 20150626
  Transmission Date: 20150821
  Serious: Yes (Other)
  Sender: FDA-Public Use
  Company Number: US-ASTRAZENECA-2012SE38204

PATIENT
  Age: 57 Year
  Sex: Female

DRUGS (4)
  1. SYMBICORT [Suspect]
     Active Substance: BUDESONIDE\FORMOTEROL FUMARATE DIHYDRATE
     Dosage: 80/4.5 MCG UNKNOWN
     Route: 055
  2. SYMBICORT [Suspect]
     Active Substance: BUDESONIDE\FORMOTEROL FUMARATE DIHYDRATE
     Dosage: 160/4.5 MCG TWO PUFFS IN THE MORNING AND TWO PUFFS AT BEDTIME
     Route: 055
  3. ASPIRIN. [Suspect]
     Active Substance: ASPIRIN
     Route: 048
  4. NEXIUM [Suspect]
     Active Substance: ESOMEPRAZOLE MAGNESIUM
     Route: 048

REACTIONS (4)
  - Loss of consciousness [Unknown]
  - Drug intolerance [Unknown]
  - Drug prescribing error [Unknown]
  - Gastric haemorrhage [Unknown]
